FAERS Safety Report 6274476-1 (Version None)
Quarter: 2009Q3

REPORT INFORMATION
  Report Type: 
  Country: None (occurrence: None)
  Receive Date: 20090720
  Receipt Date: 20090715
  Transmission Date: 20100115
  Serious: Yes (Death, Life-Threatening, Hospitalization, Other)
  Sender: FDA-Public Use
  Company Number: PHHY2009JP28207

PATIENT
  Age: 54 Year
  Sex: Male

DRUGS (11)
  1. NEORAL [Suspect]
     Indication: RENAL TRANSPLANT
     Dosage: 200 MG/DAY
     Route: 048
     Dates: start: 20070101, end: 20081201
  2. NEORAL [Suspect]
     Dosage: 150 MG/DAY
     Route: 048
     Dates: end: 20080401
  3. NEORAL [Suspect]
     Dosage: 400 MG/DAY
     Route: 048
     Dates: start: 20080701
  4. NEXAVAR [Suspect]
     Indication: RENAL CANCER
     Dosage: 800 MG/DAY
     Route: 048
     Dates: start: 20080401, end: 20081001
  5. NEXAVAR [Suspect]
     Dosage: 600 MG/DAY
     Route: 048
     Dates: start: 20081001, end: 20081201
  6. MYCOPHENOLATE MOFETIL [Concomitant]
     Indication: RENAL TRANSPLANT
     Dosage: UNK
     Dates: start: 20061201
  7. METHYLPREDNISOLONE [Concomitant]
     Indication: RENAL TRANSPLANT
     Dosage: UNK
     Dates: start: 20061201
  8. SORAFENIB TOSILATE [Concomitant]
     Indication: RENAL CANCER
     Dosage: UNK
     Dates: start: 20080401, end: 20081201
  9. OXYCODONE HCL [Concomitant]
     Dosage: UNK
     Route: 048
  10. UFT [Concomitant]
  11. INTERFERON ALFA [Concomitant]

REACTIONS (16)
  - ABDOMINAL ABSCESS [None]
  - COLECTOMY [None]
  - COLOSTOMY [None]
  - DIARRHOEA [None]
  - DRUG INTERACTION [None]
  - GENERAL PHYSICAL HEALTH DETERIORATION [None]
  - IMMUNOSUPPRESSANT DRUG LEVEL INCREASED [None]
  - INFLAMMATION [None]
  - INTESTINAL PERFORATION [None]
  - METASTASES TO BONE [None]
  - MULTI-ORGAN FAILURE [None]
  - NEOPLASM PROGRESSION [None]
  - PAIN [None]
  - RENAL CANCER RECURRENT [None]
  - RENAL IMPAIRMENT [None]
  - SEPSIS [None]
